FAERS Safety Report 24553519 (Version 2)
Quarter: 2024Q4

REPORT INFORMATION
  Report Type: Spontaneous
  Country: US (occurrence: US)
  Receive Date: 20241028
  Receipt Date: 20241210
  Transmission Date: 20250114
  Serious: Yes (Disabling, Other)
  Sender: ABBVIE
  Company Number: US-ABBVIE-5974714

PATIENT
  Age: 79 Year
  Sex: Female

DRUGS (2)
  1. REFRESH PLUS [Suspect]
     Active Substance: CARBOXYMETHYLCELLULOSE SODIUM
     Indication: Product used for unknown indication
     Dosage: REFRESH PLUS 16 X 100 X 04 ML TRAY, 5MG/ML SOLUTION UD, 30 YEARS AGO
     Route: 047
     Dates: start: 1994
  2. REFRESH PLUS [Suspect]
     Active Substance: CARBOXYMETHYLCELLULOSE SODIUM
     Indication: Product used for unknown indication
     Dosage: REFRESH PLUS 16 X 100 X 04 ML TRAY, 5MG/ML SOLUTION UD
     Route: 047

REACTIONS (4)
  - Disability [Not Recovered/Not Resolved]
  - Cataract [Unknown]
  - Product container issue [Not Recovered/Not Resolved]
  - Gait disturbance [Not Recovered/Not Resolved]

NARRATIVE: CASE EVENT DATE: 20240901
